FAERS Safety Report 9652932 (Version 2)
Quarter: 2013Q4

REPORT INFORMATION
  Report Type: Spontaneous
  Country: FR (occurrence: FR)
  Receive Date: 20131029
  Receipt Date: 20131115
  Transmission Date: 20140711
  Serious: Yes (Disabling, Other)
  Sender: FDA-Public Use
  Company Number: FR-BRISTOL-MYERS SQUIBB COMPANY-19614338

PATIENT
  Age: 77 Year
  Sex: Female
  Weight: 66 kg

DRUGS (9)
  1. ONGLYZA TABS [Suspect]
     Dosage: 1 DAILY DOSE PER DAY
     Dates: start: 20130830, end: 20130909
  2. LEVOTHYROX [Concomitant]
     Dosage: 1 DF: 75 UNITS NOS
  3. SOTALEX [Concomitant]
     Indication: ATRIAL FIBRILLATION
     Route: 048
  4. ZANIDIP [Concomitant]
     Indication: HYPERTENSION
     Dosage: 1 DF: 10 UNITS NOS
     Route: 048
  5. FENOFIBRATE [Concomitant]
     Indication: HYPERTRIGLYCERIDAEMIA
     Dosage: 1DF: 200 UNITS NOS
     Route: 048
  6. FENOFIBRATE [Concomitant]
     Indication: HYPERCHOLESTEROLAEMIA
     Dosage: 1DF: 200 UNITS NOS
     Route: 048
  7. DAONIL [Concomitant]
     Indication: DIABETES MELLITUS
     Route: 048
  8. XARELTO [Concomitant]
     Indication: ATRIAL FIBRILLATION
     Route: 048
  9. OLMESARTAN MEDOXOMIL + HCTZ [Concomitant]

REACTIONS (2)
  - Myalgia [Recovered/Resolved]
  - Arthralgia [Recovered/Resolved]
